FAERS Safety Report 11314683 (Version 1)
Quarter: 2015Q3

REPORT INFORMATION
  Report Type: Spontaneous
  Country: US (occurrence: US)
  Receive Date: 20150727
  Receipt Date: 20150727
  Transmission Date: 20151125
  Serious: Yes (Death, Hospitalization, Other)
  Sender: FDA-Public Use
  Company Number: US-GLAXOSMITHKLINE-US2014GSK054595

PATIENT
  Age: 65 Year
  Sex: Male
  Weight: 82.86 kg

DRUGS (2)
  1. VOTRIENT [Suspect]
     Active Substance: PAZOPANIB HYDROCHLORIDE
     Dosage: 400 MG, U
  2. VOTRIENT [Suspect]
     Active Substance: PAZOPANIB HYDROCHLORIDE
     Indication: RENAL CANCER
     Dosage: 200 MG, BID
     Dates: start: 20141009

REACTIONS (3)
  - Metastatic renal cell carcinoma [Fatal]
  - Chest pain [Unknown]
  - Dental care [Unknown]

NARRATIVE: CASE EVENT DATE: 20150210
